FAERS Safety Report 5087825-7 (Version None)
Quarter: 2006Q3

REPORT INFORMATION
  Report Type: 
  Country: None (occurrence: None)
  Receive Date: 20060821
  Receipt Date: 20060821
  Transmission Date: 20061208
  Serious: Yes (Other)
  Sender: FDA-Public Use
  Company Number: None

PATIENT
  Age: 71 Year
  Sex: Male
  Weight: 69.8539 kg

DRUGS (1)
  1. LIPITOR [Suspect]
     Indication: HYPERLIPIDAEMIA
     Dosage: 10 MILLIGRAM DAILY PO
     Route: 048
     Dates: start: 20030214, end: 20060124

REACTIONS (1)
  - BLOOD CREATINE PHOSPHOKINASE INCREASED [None]
